FAERS Safety Report 5432021-4 (Version None)
Quarter: 2007Q3

REPORT INFORMATION
  Report Type: 
  Country: None (occurrence: None)
  Receive Date: 20070830
  Receipt Date: 20070828
  Transmission Date: 20080115
  Serious: No
  Sender: FDA-Public Use
  Company Number: US-BOEHRINGER INGELHEIM PHARMACEUTICALS, INC.-2006-BP-06067BP

PATIENT
  Sex: Male

DRUGS (48)
  1. MIRAPEX [Suspect]
     Indication: PARKINSON'S DISEASE
     Route: 048
     Dates: start: 20001001, end: 20051101
  2. SINEMET CR [Concomitant]
     Route: 048
     Dates: start: 20010101, end: 20010101
  3. SINEMET [Concomitant]
     Route: 048
     Dates: start: 20010201
  4. PRILOSEC [Concomitant]
     Route: 048
     Dates: start: 20000701
  5. CLONAZEPAM [Concomitant]
     Route: 048
     Dates: start: 20000801
  6. SYNTHROID [Concomitant]
     Indication: HYPOTHYROIDISM
     Route: 048
     Dates: start: 19930101
  7. GUIAFENESIN [Concomitant]
     Route: 048
     Dates: start: 19930301
  8. TERAZOSIN HCL [Concomitant]
     Route: 048
     Dates: start: 20000101
  9. FEXOFENADINE [Concomitant]
     Route: 048
     Dates: start: 20000501
  10. ZOCOR [Concomitant]
     Indication: HYPERCHOLESTEROLAEMIA
     Route: 048
     Dates: start: 20000301, end: 20050101
  11. CLEMASTINE FUMARATE [Concomitant]
     Route: 048
     Dates: start: 19991101
  12. TRIAMCINOLONE [Concomitant]
     Route: 061
     Dates: start: 20000701
  13. FLOMAX [Concomitant]
     Route: 048
     Dates: start: 20010901
  14. TRAZODONE HCL [Concomitant]
     Route: 048
  15. METOCLOPRAMIDE [Concomitant]
     Route: 048
     Dates: start: 20000901
  16. SELENIUM SULFIDE [Concomitant]
     Route: 061
     Dates: start: 20020101
  17. PROPOXYPHENE W/ACETAMINOPHEN [Concomitant]
     Route: 048
     Dates: start: 19980601
  18. LISINOPRIL [Concomitant]
     Indication: HYPERTENSION
     Dates: start: 20040401
  19. ACCUPRIL [Concomitant]
     Dates: start: 20030101
  20. ATENOLOL [Concomitant]
     Indication: HYPERTENSION
     Route: 048
     Dates: start: 20030501
  21. ZETIA [Concomitant]
     Indication: HYPERCHOLESTEROLAEMIA
     Dates: start: 20040501
  22. HYDROCHLOROTHIAZIDE [Concomitant]
     Indication: HYPERTENSION
     Route: 048
     Dates: start: 20041101
  23. POTASSIUM CHLORIDE [Concomitant]
     Indication: HYPERTENSION
     Dates: start: 20040301, end: 20050401
  24. LACTULOSE [Concomitant]
     Indication: CONSTIPATION
     Route: 048
     Dates: start: 20020501
  25. CELECOXIB [Concomitant]
     Route: 048
     Dates: start: 20031201, end: 20050201
  26. KETOROLAC TROMETHAMINE [Concomitant]
     Indication: PRURITUS
     Route: 061
     Dates: start: 20000701
  27. ACIPHEX [Concomitant]
     Indication: GASTROOESOPHAGEAL REFLUX DISEASE
     Route: 048
     Dates: start: 20021101
  28. VIAGRA [Concomitant]
     Indication: ERECTILE DYSFUNCTION
     Route: 048
     Dates: start: 20050601
  29. ASPIRIN [Concomitant]
     Indication: ARTERIOSCLEROSIS
     Route: 048
     Dates: start: 20050101
  30. HYOSCYAMINE [Concomitant]
     Indication: ABDOMINAL PAIN
     Route: 048
     Dates: start: 20030701
  31. RESTORIL [Concomitant]
     Indication: INSOMNIA
     Route: 048
     Dates: start: 19930301
  32. CLARITIN [Concomitant]
     Indication: RHINITIS ALLERGIC
     Route: 048
     Dates: start: 20041201
  33. MAXZIDE [Concomitant]
     Route: 048
     Dates: end: 20050401
  34. DARVOCET [Concomitant]
     Indication: BACK PAIN
  35. LASIX [Concomitant]
     Dates: start: 20000801
  36. ALBUTEROL [Concomitant]
     Route: 055
     Dates: start: 19990101
  37. FLONASE [Concomitant]
     Indication: RHINITIS ALLERGIC
     Route: 045
     Dates: start: 19990501
  38. FLEET PHOSPHO-SODA [Concomitant]
     Route: 048
     Dates: start: 20020901
  39. LAMISIL [Concomitant]
     Route: 048
     Dates: start: 20030901
  40. TRIAMTERENE AND HYDROCHLOROTHIAZIDE [Concomitant]
     Route: 048
     Dates: start: 20041201
  41. AMBIEN [Concomitant]
     Indication: INSOMNIA
     Route: 048
     Dates: start: 19980601
  42. LEVITRA [Concomitant]
     Indication: ERECTILE DYSFUNCTION
     Route: 048
     Dates: start: 20060601
  43. NAPROSYN [Concomitant]
     Dates: start: 19900801
  44. HYTRIN [Concomitant]
     Indication: BENIGN PROSTATIC HYPERPLASIA
  45. DIPHENHYDRAMINE HCL [Concomitant]
  46. BECONASE [Concomitant]
     Route: 055
  47. VASOCON [Concomitant]
  48. MULTIVITAMIN WITH MINERALS [Concomitant]

REACTIONS (3)
  - DEPRESSION [None]
  - OBSESSIVE-COMPULSIVE DISORDER [None]
  - PATHOLOGICAL GAMBLING [None]
